FAERS Safety Report 5480610-3 (Version None)
Quarter: 2007Q4

REPORT INFORMATION
  Report Type: 
  Country: None (occurrence: None)
  Receive Date: 20071009
  Receipt Date: 20071001
  Transmission Date: 20080405
  Serious: Yes (Hospitalization)
  Sender: FDA-Public Use
  Company Number: FR-ASTRAZENECA-2007CG01387

PATIENT
  Age: 32041 Day
  Sex: Female

DRUGS (4)
  1. TENORMIN [Suspect]
     Indication: HYPERTENSION
     Route: 048
     Dates: end: 20070824
  2. DIGOXIN [Suspect]
     Indication: ARRHYTHMIA
     Route: 048
     Dates: end: 20070824
  3. ATACAND [Concomitant]
     Indication: HYPERTENSION
     Route: 048
     Dates: end: 20070824
  4. ESIDRIX [Concomitant]
     Indication: HYPERTENSION
     Route: 048
     Dates: end: 20070824

REACTIONS (3)
  - BRADYCARDIA [None]
  - FALL [None]
  - HEAD INJURY [None]
